FAERS Safety Report 24941779 (Version 1)
Quarter: 2025Q1

REPORT INFORMATION
  Report Type: Spontaneous
  Country: US (occurrence: None)
  Receive Date: 20250207
  Receipt Date: 20250207
  Transmission Date: 20250408
  Serious: Yes (Hospitalization)
  Sender: FDA-CTU
  Company Number: None

PATIENT
  Age: 53 Year
  Sex: Female
  Weight: 84 kg

DRUGS (10)
  1. NOLVADEX [Suspect]
     Active Substance: TAMOXIFEN CITRATE
  2. FUROSEMIDE [Suspect]
     Active Substance: FUROSEMIDE
  3. SPIRONOLACTONE [Suspect]
     Active Substance: SPIRONOLACTONE
  4. NOLVADEX [Suspect]
     Active Substance: TAMOXIFEN CITRATE
  5. ACETAMINOPHEN [Concomitant]
     Active Substance: ACETAMINOPHEN
  6. BUSPIRONE [Concomitant]
     Active Substance: BUSPIRONE HYDROCHLORIDE
  7. CITALOPRAM [Concomitant]
     Active Substance: CITALOPRAM
  8. GABAPENTIN [Concomitant]
     Active Substance: GABAPENTIN
  9. SEMAGLUTIDE [Concomitant]
     Active Substance: SEMAGLUTIDE
  10. VENLAFAXINE [Concomitant]
     Active Substance: VENLAFAXINE HYDROCHLORIDE

REACTIONS (13)
  - Hepatic cirrhosis [None]
  - Hepatic failure [None]
  - Hepatic steatosis [None]
  - Alcoholic liver disease [None]
  - Hyponatraemia [None]
  - Hypokalaemia [None]
  - Electrolyte depletion [None]
  - Acute kidney injury [None]
  - Hypovolaemia [None]
  - Hepatorenal syndrome [None]
  - Septic shock [None]
  - Liver transplant [None]
  - Therapy interrupted [None]

NARRATIVE: CASE EVENT DATE: 20241027
